FAERS Safety Report 17953971 (Version 5)
Quarter: 2020Q4

REPORT INFORMATION
  Report Type: Other
  Country: US (occurrence: US)
  Receive Date: 20200628
  Receipt Date: 20201024
  Transmission Date: 20210113
  Serious: Yes (Other)
  Sender: FDA-Public Use
  Company Number: US-ROCHE-2589818

PATIENT
  Sex: Female

DRUGS (2)
  1. ACTEMRA [Suspect]
     Active Substance: TOCILIZUMAB
     Indication: GIANT CELL ARTERITIS
     Route: 058
  2. ACTEMRA [Suspect]
     Active Substance: TOCILIZUMAB

REACTIONS (6)
  - Incision site impaired healing [Unknown]
  - Urinary tract infection [Unknown]
  - Fungal infection [Unknown]
  - Staphylococcal infection [Not Recovered/Not Resolved]
  - Back pain [Unknown]
  - Streptococcal infection [Unknown]
